FAERS Safety Report 5035703-1 (Version None)
Quarter: 2006Q2

REPORT INFORMATION
  Report Type: 
  Country: None (occurrence: None)
  Receive Date: 20060526
  Receipt Date: 20060330
  Transmission Date: 20061013
  Serious: No
  Sender: FDA-Public Use
  Company Number: 223639

PATIENT
  Sex: Female

DRUGS (2)
  1. RAPTIVA [Suspect]
     Indication: DRUG USE FOR UNKNOWN INDICATION
  2. POST-OP MEDICATIONS NOS (GENERIC COMPONENT(S) NOT KNOWN) [Concomitant]

REACTIONS (1)
  - INFECTION [None]
